FAERS Safety Report 24811012 (Version 6)
Quarter: 2025Q2

REPORT INFORMATION
  Report Type: Spontaneous
  Country: US (occurrence: US)
  Receive Date: 20250106
  Receipt Date: 20250401
  Transmission Date: 20250716
  Serious: No
  Sender: PFIZER
  Company Number: US-PFIZER INC-202400332531

PATIENT
  Age: 66 Year
  Sex: Male
  Weight: 97.52 kg

DRUGS (2)
  1. GENOTROPIN [Suspect]
     Active Substance: SOMATROPIN
     Indication: Growth hormone deficiency
  2. GENOTROPIN [Suspect]
     Active Substance: SOMATROPIN
     Dosage: 2 MG IN THE MORNING, 1 MG AT NOON, 2 MG BEFORE BED

REACTIONS (8)
  - Nasopharyngitis [Unknown]
  - Off label use [Unknown]
  - Drug dose omission by device [Unknown]
  - Expired device used [Unknown]
  - Device issue [Unknown]
  - Device mechanical issue [Unknown]
  - Device information output issue [Unknown]
  - Device defective [Unknown]
